FAERS Safety Report 25988862 (Version 1)
Quarter: 2025Q4

REPORT INFORMATION
  Report Type: Spontaneous
  Country: JP (occurrence: JP)
  Receive Date: 20251103
  Receipt Date: 20251103
  Transmission Date: 20260118
  Serious: Yes (Hospitalization)
  Sender: STRIDES
  Company Number: None

PATIENT
  Age: 32 Year
  Sex: Female

DRUGS (10)
  1. PREDNISOLONE [Suspect]
     Active Substance: PREDNISOLONE
     Indication: Post-acute COVID-19 syndrome
     Dosage: 2.5 MILLIGRAM
     Route: 048
  2. PREDNISOLONE [Suspect]
     Active Substance: PREDNISOLONE
     Dosage: 3 MILLIGRAM
     Route: 065
  3. PREDNISOLONE [Suspect]
     Active Substance: PREDNISOLONE
     Dosage: 2 MILLIGRAM
     Route: 065
  4. BETAMETHASONE [Suspect]
     Active Substance: BETAMETHASONE
     Indication: Post-acute COVID-19 syndrome
     Dosage: 0.5 MILLIGRAM
     Route: 048
  5. PREDNISOLONE [Suspect]
     Active Substance: PREDNISOLONE
     Indication: Post-acute COVID-19 syndrome
     Dosage: 40 MILLIGRAM, ONCE A WEEK
     Route: 065
  6. OLANZAPINE [Concomitant]
     Active Substance: OLANZAPINE
     Indication: Depression
     Dosage: 5 MILLIGRAM, QD
     Route: 065
  7. OLANZAPINE [Concomitant]
     Active Substance: OLANZAPINE
     Dosage: 10 MILLIGRAM, QD
     Route: 065
  8. OLANZAPINE [Concomitant]
     Active Substance: OLANZAPINE
     Dosage: UNK
     Route: 030
  9. VALPROATE SODIUM [Concomitant]
     Active Substance: VALPROATE SODIUM
     Indication: Depression
     Dosage: 400 MILLIGRAM
     Route: 065
  10. VALPROATE SODIUM [Concomitant]
     Active Substance: VALPROATE SODIUM
     Dosage: 800 MILLIGRAM
     Route: 065

REACTIONS (3)
  - Mania [Recovered/Resolved]
  - Condition aggravated [Recovered/Resolved]
  - Off label use [Unknown]

NARRATIVE: CASE EVENT DATE: 20240301
